FAERS Safety Report 9385703 (Version 2)
Quarter: 2013Q3

REPORT INFORMATION
  Report Type: Spontaneous
  Country: ES (occurrence: ES)
  Receive Date: 20130705
  Receipt Date: 20130709
  Transmission Date: 20140515
  Serious: Yes (Other)
  Sender: FDA-Public Use
  Company Number: ES-SANOFI-AVENTIS-2013SA065776

PATIENT
  Age: 48 Year
  Sex: Female

DRUGS (4)
  1. LEFLUNOMIDE [Suspect]
     Indication: RHEUMATOID ARTHRITIS
     Route: 048
     Dates: start: 201205
  2. CERTOLIZUMAB PEGOL [Suspect]
     Indication: RHEUMATOID ARTHRITIS
     Dosage: STRENGTH: 200 MG SUBCUTANEOUS INJECTION
     Route: 058
     Dates: start: 201205, end: 201207
  3. VERISCAL D [Concomitant]
     Dosage: DOSAGE: 1200/800
     Route: 048
     Dates: start: 201201
  4. DEFLAZACORT [Concomitant]
     Route: 048
     Dates: start: 201201

REACTIONS (1)
  - Dermatitis exfoliative [Recovered/Resolved]
